FAERS Safety Report 24782025 (Version 1)
Quarter: 2024Q4

REPORT INFORMATION
  Report Type: Spontaneous
  Country: JP (occurrence: JP)
  Receive Date: 20241227
  Receipt Date: 20241227
  Transmission Date: 20250115
  Serious: Yes (Death, Other)
  Sender: INSMED
  Company Number: JP-INSMED, INC.-2024-05234-JP

PATIENT
  Age: 8 Decade
  Sex: Female

DRUGS (1)
  1. ARIKAYCE [Suspect]
     Active Substance: AMIKACIN
     Indication: Mycobacterium avium complex infection
     Dosage: UNK UNK, UNK
     Route: 055

REACTIONS (1)
  - Mycobacterium avium complex infection [Fatal]
